FAERS Safety Report 18094077 (Version 1)
Quarter: 2020Q3

REPORT INFORMATION
  Report Type: Spontaneous
  Country: AU (occurrence: AU)
  Receive Date: 20200730
  Receipt Date: 20200730
  Transmission Date: 20201103
  Serious: Yes (Hospitalization)
  Sender: FDA-Public Use
  Company Number: AU-MYLANLABS-2020M1067654

PATIENT
  Age: 31 Year
  Sex: Female

DRUGS (4)
  1. ANPEC 40 [Suspect]
     Active Substance: VERAPAMIL HYDROCHLORIDE
     Dosage: 40 MILLIGRAM, BID
     Dates: start: 20200717, end: 20200721
  2. ANPEC 40 [Suspect]
     Active Substance: VERAPAMIL HYDROCHLORIDE
     Indication: ANGINA PECTORIS
     Dosage: 40 MILLIGRAM, BID (100)
     Dates: start: 20200715
  3. ANPEC 40 [Suspect]
     Active Substance: VERAPAMIL HYDROCHLORIDE
     Dosage: 40 MILLIGRAM, BID
     Dates: start: 20200716
  4. VASOCARDOL [Concomitant]
     Dosage: UNK, TID (1/2 TABLET 3X DAILY)

REACTIONS (7)
  - Capillary fragility [Unknown]
  - Erythema [Unknown]
  - Drug ineffective [Unknown]
  - Formication [Unknown]
  - Rash [Unknown]
  - Chest discomfort [Unknown]
  - Product supply issue [Unknown]

NARRATIVE: CASE EVENT DATE: 20200717
